FAERS Safety Report 8254356-2 (Version None)
Quarter: 2012Q2

REPORT INFORMATION
  Report Type: 
  Country: None (occurrence: None)
  Receive Date: 20120402
  Receipt Date: 20120323
  Transmission Date: 20120825
  Serious: No
  Sender: FDA-Public Use
  Company Number: US-AMGEN-USASP2012018968

PATIENT
  Sex: Female

DRUGS (11)
  1. SYNTHROID [Concomitant]
     Dosage: UNK
  2. TREXALL [Concomitant]
     Dosage: UNK
  3. ENBREL [Suspect]
     Indication: RHEUMATOID ARTHRITIS
     Dosage: 50 MG, QWK
  4. LIPITOR [Concomitant]
     Dosage: UNK
  5. BUSPIRONE HCL [Concomitant]
     Dosage: UNK
  6. FOLIC ACID [Concomitant]
     Dosage: UNK
  7. ELMIRON [Concomitant]
  8. METHOTREXATE [Concomitant]
     Dosage: UNK
  9. LOPRESSOR [Concomitant]
     Dosage: UNK
  10. MACROBID                           /00984601/ [Concomitant]
  11. VITAMIN D [Concomitant]
     Dosage: UNK

REACTIONS (1)
  - HEADACHE [None]
